FAERS Safety Report 13359362 (Version 1)
Quarter: 2017Q1

REPORT INFORMATION
  Report Type: Other
  Country: IR (occurrence: IR)
  Receive Date: 20170322
  Receipt Date: 20170322
  Transmission Date: 20170429
  Serious: Yes (Other)
  Sender: FDA-Public Use
  Company Number: IR-EMD SERONO-8150076

PATIENT

DRUGS (3)
  1. PERGONAL [Suspect]
     Active Substance: MENOTROPINS
     Indication: INFERTILITY
     Dosage: STARTED AT DAY 6 OF ADMINISTRATION
     Route: 030
  2. CLOMIPHENE CITRATE. [Suspect]
     Active Substance: CLOMIPHENE CITRATE
     Indication: INFERTILITY
  3. PROFASI HP [Suspect]
     Active Substance: GONADOTROPHIN, CHORIONIC
     Indication: INFERTILITY

REACTIONS (3)
  - Maternal exposure before pregnancy [None]
  - Pregnancy [None]
  - Abortion [Recovered/Resolved]
